FAERS Safety Report 8593804-5 (Version None)
Quarter: 2012Q3

REPORT INFORMATION
  Report Type: 
  Country: None (occurrence: None)
  Receive Date: 20120814
  Receipt Date: 20120807
  Transmission Date: 20120928
  Serious: No
  Sender: FDA-Public Use
  Company Number: US-ASTRAZENECA-2012SE25804

PATIENT
  Age: 43 Year
  Sex: Female
  Weight: 90.7 kg

DRUGS (9)
  1. SEROQUEL [Suspect]
     Indication: MAJOR DEPRESSION
     Route: 048
  2. IMIPRAMINE HCL [Concomitant]
  3. ATENOLOL [Concomitant]
  4. SEROQUEL [Suspect]
     Indication: BIPOLAR DISORDER
     Route: 048
  5. KLONOPIN [Concomitant]
     Dosage: TWICE DAILY
  6. SEROQUEL [Suspect]
     Route: 048
  7. NEURONTIN [Concomitant]
  8. CELEXA [Concomitant]
  9. SEROQUEL [Suspect]
     Route: 048

REACTIONS (6)
  - APHAGIA [None]
  - MUSCULAR WEAKNESS [None]
  - WITHDRAWAL SYNDROME [None]
  - WEIGHT INCREASED [None]
  - DRUG DOSE OMISSION [None]
  - INSOMNIA [None]
